FAERS Safety Report 18030203 (Version 2)
Quarter: 2020Q3

REPORT INFORMATION
  Report Type: Spontaneous
  Country: SA (occurrence: SA)
  Receive Date: 20200715
  Receipt Date: 20200723
  Transmission Date: 20201103
  Serious: Yes (Death, Other)
  Sender: FDA-Public Use
  Company Number: SA-BIOMARINAP-SA-2020-131167

PATIENT
  Age: 18 Year
  Sex: Male
  Weight: 16.5 kg

DRUGS (1)
  1. VIMIZIM [Suspect]
     Active Substance: ELOSULFASE ALFA
     Indication: MUCOPOLYSACCHARIDOSIS IV
     Dosage: 30 MILLIGRAM, QW
     Route: 042
     Dates: start: 201807

REACTIONS (2)
  - COVID-19 [Fatal]
  - Cervical cord compression [Unknown]

NARRATIVE: CASE EVENT DATE: 20200705
